FAERS Safety Report 13778846 (Version 2)
Quarter: 2022Q1

REPORT INFORMATION
  Report Type: Spontaneous
  Country: US (occurrence: US)
  Receive Date: 20170721
  Receipt Date: 20220311
  Transmission Date: 20220424
  Serious: No
  Sender: FDA-Public Use
  Company Number: US-PFIZER INC-2017314689

PATIENT
  Age: 70 Year
  Sex: Female

DRUGS (1)
  1. PRISTIQ EXTENDED-RELEASE [Suspect]
     Active Substance: DESVENLAFAXINE SUCCINATE
     Dosage: UNK

REACTIONS (4)
  - Drug withdrawal syndrome [Unknown]
  - Tremor [Unknown]
  - Paraesthesia [Unknown]
  - Nerve injury [Unknown]
